FAERS Safety Report 24982838 (Version 1)
Quarter: 2025Q1

REPORT INFORMATION
  Report Type: Spontaneous
  Country: CN (occurrence: CN)
  Receive Date: 20250218
  Receipt Date: 20250218
  Transmission Date: 20250408
  Serious: Yes (Other)
  Sender: PFIZER
  Company Number: CN-PFIZER INC-PV202500018041

PATIENT
  Age: 36 Year
  Sex: Female
  Weight: 52 kg

DRUGS (4)
  1. EPIRUBICIN [Suspect]
     Active Substance: EPIRUBICIN
     Indication: Breast cancer metastatic
     Dosage: 140 MG (+100 ML SODIUM CHLORIDE), 1X/DAY
     Route: 041
     Dates: start: 20250205, end: 20250205
  2. CYCLOPHOSPHAMIDE [Suspect]
     Active Substance: CYCLOPHOSPHAMIDE
     Indication: Breast cancer metastatic
     Dosage: 900 MG (+100 ML SODIUM CHLORIDE), 1X/DAY
     Route: 041
     Dates: start: 20250205, end: 20250205
  3. SODIUM CHLORIDE [Concomitant]
     Active Substance: SODIUM CHLORIDE
     Indication: Vehicle solution use
     Dosage: 100 ML, 1X/DAY (FOR EPIRUBICIN HCL)
     Route: 041
     Dates: start: 20250205, end: 20250205
  4. SODIUM CHLORIDE [Concomitant]
     Active Substance: SODIUM CHLORIDE
     Dosage: 100 ML, 1X/DAY (FOR CYCLOPHOSPHAMIDE)
     Route: 041
     Dates: start: 20250205, end: 20250205

REACTIONS (3)
  - Sleep disorder [Recovering/Resolving]
  - White blood cell count decreased [Recovering/Resolving]
  - Neutrophil count decreased [Recovering/Resolving]

NARRATIVE: CASE EVENT DATE: 20250207
